FAERS Safety Report 19783379 (Version 1)
Quarter: 2021Q3

REPORT INFORMATION
  Report Type: Spontaneous
  Country: US (occurrence: US)
  Receive Date: 20210902
  Receipt Date: 20210902
  Transmission Date: 20211014
  Serious: No
  Sender: FDA-Public Use
  Company Number: US-ASCEND THERAPEUTICS US, LLC-2117967

PATIENT
  Age: 76 Year
  Sex: Female
  Weight: 58.18 kg

DRUGS (4)
  1. ESTROGEL [Suspect]
     Active Substance: ESTRADIOL
     Indication: BONE DENSITY DECREASED
     Route: 061
     Dates: start: 20000101
  2. ESTROGEL [Suspect]
     Active Substance: ESTRADIOL
  3. ESTROGEL [Suspect]
     Active Substance: ESTRADIOL
     Route: 061
     Dates: start: 20000101
  4. VITAMINS(VITAMINS NOS) [Concomitant]
     Route: 065

REACTIONS (4)
  - Blood oestrogen decreased [Not Recovered/Not Resolved]
  - Symptom recurrence [Not Recovered/Not Resolved]
  - Product dispensing error [None]
  - Off label use [None]

NARRATIVE: CASE EVENT DATE: 20000101
